FAERS Safety Report 18944015 (Version 1)
Quarter: 2021Q1

REPORT INFORMATION
  Report Type: Spontaneous
  Country: US (occurrence: US)
  Receive Date: 20210226
  Receipt Date: 20210226
  Transmission Date: 20210420
  Serious: No
  Sender: FDA-Public Use
  Company Number: US-SA-2021SA063474

PATIENT
  Age: 50 Year
  Sex: Female

DRUGS (1)
  1. KEVZARA [Suspect]
     Active Substance: SARILUMAB
     Route: 058
     Dates: start: 202011

REACTIONS (2)
  - Pruritus [Recovered/Resolved]
  - Skin swelling [Unknown]

NARRATIVE: CASE EVENT DATE: 20201120
